FAERS Safety Report 8890486 (Version 1)
Quarter: 2012Q4

REPORT INFORMATION
  Report Type: 
  Country: US (occurrence: US)
  Receive Date: 20121107
  Receipt Date: 20121107
  Transmission Date: 20130627
  Serious: Yes (Hospitalization)
  Sender: FDA-Public Use
  Company Number: US-ACTELION-A-US2012-73572

PATIENT
  Age: 44 Year
  Sex: Female

DRUGS (7)
  1. TRACLEER [Suspect]
     Indication: PULMONARY ARTERIAL HYPERTENSION
     Dosage: 125 mg, bid
     Route: 048
  2. CASCARA SAGRADA [Concomitant]
  3. IBUPROFEN [Concomitant]
  4. LORAZEPAM [Concomitant]
  5. MAGNESIUM HYDROXIDE [Concomitant]
  6. NAPROSYN [Concomitant]
  7. SEROQUEL [Concomitant]

REACTIONS (1)
  - Mania [Unknown]
